FAERS Safety Report 6588164-5 (Version None)
Quarter: 2010Q1

REPORT INFORMATION
  Report Type: 
  Country: None (occurrence: None)
  Receive Date: 20100218
  Receipt Date: 20090603
  Transmission Date: 20100710
  Serious: No
  Sender: FDA-Public Use
  Company Number: US-ASTRAZENECA-2009UW14204

PATIENT
  Age: 83 Year
  Sex: Female
  Weight: 70.8 kg

DRUGS (8)
  1. PLENDIL [Suspect]
     Route: 048
  2. BENICAR [Concomitant]
  3. TOPROL-XL [Concomitant]
  4. HYDROCHLOROTHIAZIDE [Concomitant]
  5. SYMBICORT [Concomitant]
  6. CRESTOR [Concomitant]
  7. ZOCOR [Concomitant]
  8. SYNTHROID [Concomitant]

REACTIONS (3)
  - ALOPECIA [None]
  - FLATULENCE [None]
  - OEDEMA PERIPHERAL [None]
